FAERS Safety Report 4644502-1 (Version None)
Quarter: 2005Q2

REPORT INFORMATION
  Report Type: 
  Country: None (occurrence: None)
  Receive Date: 20050422
  Receipt Date: 20050325
  Transmission Date: 20051028
  Serious: Yes (Hospitalization)
  Sender: FDA-Public Use
  Company Number: 2005BI006575

PATIENT
  Age: 70 Year
  Sex: Female
  Weight: 68 kg

DRUGS (9)
  1. AVONEX [Suspect]
     Indication: MULTIPLE SCLEROSIS
     Dosage: 30 UG;QW; IM
     Route: 030
     Dates: start: 19990101, end: 20040101
  2. AVONEX [Suspect]
     Indication: MULTIPLE SCLEROSIS
     Dosage: 30 UG;QW; IM
     Route: 030
     Dates: start: 20040401, end: 20050303
  3. UN-ALFA [Concomitant]
  4. MOPRAL [Concomitant]
  5. LEVOTHYROX [Concomitant]
  6. TOPALGIC [Concomitant]
  7. VASTAREL [Concomitant]
  8. KETOPROFEN [Concomitant]
  9. CHONDROSULF [Concomitant]

REACTIONS (3)
  - CARDIAC FAILURE [None]
  - CONGESTIVE CARDIOMYOPATHY [None]
  - LEFT VENTRICULAR FAILURE [None]
